FAERS Safety Report 4626787-0 (Version None)
Quarter: 2005Q2

REPORT INFORMATION
  Report Type: 
  Country: None (occurrence: None)
  Receive Date: 20050401
  Receipt Date: 20050401
  Transmission Date: 20051028
  Serious: Yes (Hospitalization)
  Sender: FDA-Public Use
  Company Number: None

PATIENT
  Age: 58 Year
  Sex: Male
  Weight: 84 kg

DRUGS (6)
  1. METFORMIN 850MG [Suspect]
     Indication: DIABETES MELLITUS
     Dosage: 850MG BID ORAL
     Route: 048
  2. GABAPENTIN [Concomitant]
  3. OXYCODONE HCL [Concomitant]
  4. LISINOPRIL [Concomitant]
  5. FUROSEMIDE [Concomitant]
  6. SIMVASTATIN [Concomitant]

REACTIONS (7)
  - ACIDOSIS [None]
  - DEHYDRATION [None]
  - FEELING ABNORMAL [None]
  - HYPERKALAEMIA [None]
  - NAUSEA [None]
  - RENAL FAILURE ACUTE [None]
  - VOMITING [None]
